FAERS Safety Report 4755016-2 (Version None)
Quarter: 2005Q3

REPORT INFORMATION
  Report Type: 
  Country: None (occurrence: None)
  Receive Date: 20050825
  Receipt Date: 20050815
  Transmission Date: 20060218
  Serious: Yes (Life-Threatening, Hospitalization)
  Sender: FDA-Public Use
  Company Number: 2005105645

PATIENT
  Age: 61 Year
  Sex: Male
  Weight: 102 kg

DRUGS (3)
  1. ZOLOFT [Suspect]
     Indication: DEPRESSION
     Dosage: 50 MG (1 D), ORAL
     Route: 048
     Dates: start: 20050407
  2. PROPOFOL [Concomitant]
  3. ULTIVA [Concomitant]

REACTIONS (4)
  - ATRIAL FIBRILLATION [None]
  - CARDIAC DISORDER [None]
  - PROCEDURAL COMPLICATION [None]
  - TACHYARRHYTHMIA [None]
